FAERS Safety Report 9594803 (Version 1)
Quarter: 2013Q4

REPORT INFORMATION
  Report Type: Spontaneous
  Country: US (occurrence: None)
  Receive Date: 20131001
  Receipt Date: 20131001
  Transmission Date: 20140711
  Serious: Yes (Other)
  Sender: FDA-Public Use
  Company Number: 2013BAX001992

PATIENT
  Age: 72 Year
  Sex: Female
  Weight: 109.77 kg

DRUGS (6)
  1. GAMMAGARD S/D [Suspect]
     Indication: IMMUNODEFICIENCY COMMON VARIABLE
     Dates: start: 20121212, end: 20121212
  2. NORVASC (AMLODIPINE BESILATE) [Concomitant]
  3. SIMVASTATIN [Concomitant]
  4. DYAZIDE (HYDROCHLORIDE, TRIAMTERENE) [Concomitant]
  5. NEURONTIN (GABAPENTIN) [Concomitant]
  6. COUMADIN (WARFARIN SODIUM) [Concomitant]

REACTIONS (2)
  - Pruritus [None]
  - Urticaria [None]
